FAERS Safety Report 8007535-3 (Version None)
Quarter: 2011Q4

REPORT INFORMATION
  Report Type: 
  Country: None (occurrence: None)
  Receive Date: 20111227
  Receipt Date: 20111216
  Transmission Date: 20120403
  Serious: Yes (Hospitalization)
  Sender: FDA-Public Use
  Company Number: US-BAYER-2011-053837

PATIENT
  Age: 19 Year
  Sex: Female
  Weight: 53.061 kg

DRUGS (3)
  1. GARDASIL [Concomitant]
     Dosage: UNK
     Dates: start: 20071207
  2. YAZ [Suspect]
     Indication: CONTRACEPTION
     Dosage: UNK
     Dates: start: 20071201, end: 20080201
  3. GARDASIL [Concomitant]
     Dosage: UNK
     Dates: start: 20080212

REACTIONS (4)
  - DEEP VEIN THROMBOSIS [None]
  - MENTAL DISORDER [None]
  - INJURY [None]
  - PAIN [None]
